FAERS Safety Report 24303951 (Version 3)
Quarter: 2025Q1

REPORT INFORMATION
  Report Type: Report from Study
  Country: JP (occurrence: JP)
  Receive Date: 20240910
  Receipt Date: 20250103
  Transmission Date: 20250408
  Serious: Yes (Death)
  Sender: PFIZER
  Company Number: JP-PFIZER INC-PV202400117899

PATIENT
  Age: 73 Year
  Sex: Male
  Weight: 56.1 kg

DRUGS (2)
  1. ELRANATAMAB [Suspect]
     Active Substance: ELRANATAMAB
     Indication: Plasma cell myeloma
     Route: 058
     Dates: start: 20240826, end: 20240826
  2. ELRANATAMAB [Suspect]
     Active Substance: ELRANATAMAB
     Route: 058
     Dates: start: 20240829, end: 20240829

REACTIONS (2)
  - Asphyxia [Fatal]
  - Pharyngeal haemorrhage [Fatal]

NARRATIVE: CASE EVENT DATE: 20240904
